FAERS Safety Report 17325822 (Version 1)
Quarter: 2020Q1

REPORT INFORMATION
  Report Type: Spontaneous
  Country: DE (occurrence: DE)
  Receive Date: 20200127
  Receipt Date: 20200127
  Transmission Date: 20200409
  Serious: Yes (Other)
  Sender: FDA-Public Use
  Company Number: DE-MYLANLABS-2020M1007851

PATIENT
  Age: 31 Year
  Sex: Female
  Weight: 57 kg

DRUGS (1)
  1. PRAVIDEL 2,5 MG TABLETTEN [Suspect]
     Active Substance: BROMOCRIPTINE
     Indication: PRODUCT USED FOR UNKNOWN INDICATION
     Dosage: TAG 1 UND 2: 1/2 JEWEILS MORGENS UND ABENDS;  TAG 3 BIS 7: 1/2 JEWEILS MORGENS, MITTAGS, ABENDS
     Route: 048
     Dates: start: 20191012, end: 20191018

REACTIONS (29)
  - Headache [Recovered/Resolved]
  - Feeling cold [Recovered/Resolved]
  - Chest discomfort [Recovered/Resolved]
  - Epistaxis [Recovered/Resolved]
  - Tremor [Recovered/Resolved]
  - Dermatitis allergic [Recovered/Resolved]
  - Somnolence [Recovered/Resolved]
  - Neurodermatitis [Recovered/Resolved]
  - Alopecia [Recovered/Resolved]
  - Anxiety [Recovered/Resolved]
  - Tinnitus [Recovered/Resolved]
  - Hallucination, visual [Recovered/Resolved]
  - Depressed mood [Recovered/Resolved]
  - Nasal congestion [Recovered/Resolved]
  - Circulatory collapse [Recovered/Resolved]
  - Hypoaesthesia [Recovered/Resolved]
  - Restlessness [Recovered/Resolved]
  - Abdominal distension [Recovered/Resolved]
  - Diarrhoea [Recovered/Resolved]
  - Blood pressure increased [Recovered/Resolved]
  - Decreased appetite [Recovered/Resolved]
  - Constipation [Recovered/Resolved]
  - Dizziness [Recovered/Resolved]
  - Nausea [Recovered/Resolved]
  - Palpitations [Recovered/Resolved]
  - Blood pressure decreased [Recovered/Resolved]
  - Insomnia [Recovered/Resolved]
  - Dry mouth [Recovered/Resolved]
  - Fatigue [Recovered/Resolved]

NARRATIVE: CASE EVENT DATE: 201910
